FAERS Safety Report 6146230-2 (Version None)
Quarter: 2009Q2

REPORT INFORMATION
  Report Type: 
  Country: None (occurrence: None)
  Receive Date: 20090403
  Receipt Date: 20090320
  Transmission Date: 20091009
  Serious: Yes (Hospitalization)
  Sender: FDA-Public Use
  Company Number: 2009AL001653

PATIENT
  Age: 71 Year
  Sex: Female

DRUGS (4)
  1. DIGOXIN [Suspect]
     Indication: ATRIAL FIBRILLATION
     Dosage: PO
     Route: 048
  2. ALDACTONE [Concomitant]
  3. ATACAND [Concomitant]
  4. ASPIRIN [Concomitant]

REACTIONS (17)
  - ABASIA [None]
  - ATRIAL FIBRILLATION [None]
  - BLINDNESS [None]
  - BLOOD URIC ACID INCREASED [None]
  - CEREBROVASCULAR ACCIDENT [None]
  - CHOLECYSTECTOMY [None]
  - DIABETIC ULCER [None]
  - FOOT FRACTURE [None]
  - GLAUCOMA [None]
  - LOCALISED INFECTION [None]
  - MALAISE [None]
  - OEDEMA PERIPHERAL [None]
  - THROMBOSIS [None]
  - TRANSIENT ISCHAEMIC ATTACK [None]
  - WALKING AID USER [None]
  - WEIGHT DECREASED [None]
  - WHEELCHAIR USER [None]
